FAERS Safety Report 9315474 (Version 2)
Quarter: 2013Q3

REPORT INFORMATION
  Report Type: Report from Study
  Country: CO (occurrence: CO)
  Receive Date: 20130529
  Receipt Date: 20130805
  Transmission Date: 20140515
  Serious: Yes (Disabling, Other)
  Sender: FDA-Public Use
  Company Number: CO-ROCHE-1229970

PATIENT
  Age: 40 Year
  Sex: Male
  Weight: 72 kg

DRUGS (3)
  1. RANIBIZUMAB [Suspect]
     Indication: MACULAR DEGENERATION
     Dosage: LAST DOSE ON 01/JUL/2013
     Route: 050
     Dates: start: 20120217
  2. ALPHA LIPOIC ACID [Concomitant]
  3. GLUCOVANCE [Concomitant]

REACTIONS (2)
  - Fibula fracture [Recovered/Resolved]
  - Road traffic accident [Unknown]
